FAERS Safety Report 8010195-9 (Version None)
Quarter: 2011Q4

REPORT INFORMATION
  Report Type: 
  Country: None (occurrence: None)
  Receive Date: 20111228
  Receipt Date: 20111213
  Transmission Date: 20120403
  Serious: Yes (Death)
  Sender: FDA-Public Use
  Company Number: RU-ACTELION-A-CH2011-58379

PATIENT
  Age: 38 Year
  Sex: Female
  Weight: 51 kg

DRUGS (7)
  1. WARFARIN [Concomitant]
  2. PREDUCTAL [Concomitant]
  3. DILTIAZEM HCL [Concomitant]
  4. SPIRONOLACTONE [Concomitant]
  5. FUROSEMIDE [Concomitant]
  6. TRACLEER [Suspect]
     Indication: PULMONARY ARTERIAL HYPERTENSION
     Dosage: 125 MG, BID
     Route: 048
     Dates: start: 20110801
  7. TRACLEER [Suspect]
     Dosage: 62.5 MG, BID
     Route: 048
     Dates: start: 20110701, end: 20110801

REACTIONS (2)
  - CARDIAC FAILURE [None]
  - BALLOON ATRIAL SEPTOSTOMY [None]
